FAERS Safety Report 5375136-1 (Version None)
Quarter: 2007Q2

REPORT INFORMATION
  Report Type: 
  Country: None (occurrence: None)
  Receive Date: 20070629
  Receipt Date: 20060907
  Transmission Date: 20071010
  Serious: No
  Sender: FDA-Public Use
  Company Number: US-ASTRAZENECA-2003UW13253

PATIENT
  Age: 77 Year
  Sex: Female

DRUGS (13)
  1. TAMOXIFEN CITRATE [Suspect]
     Route: 048
     Dates: start: 20000101, end: 20010101
  2. LEVOXYL [Concomitant]
  3. SPIRONOLACTONE [Concomitant]
  4. LIPITOR [Concomitant]
  5. TRICOR [Concomitant]
  6. COVERA-HS [Concomitant]
  7. GLUCOPHAGE [Concomitant]
  8. ECOTRIN [Concomitant]
  9. NIACIN [Concomitant]
  10. CALCIUM WITH MAGNESIUM [Concomitant]
  11. ASCORBIC ACID [Concomitant]
  12. VITAMIN E [Concomitant]
  13. FOLIC ACID [Concomitant]

REACTIONS (1)
  - LIMB DISCOMFORT [None]
